FAERS Safety Report 23342804 (Version 1)
Quarter: 2023Q4

REPORT INFORMATION
  Report Type: Report from Study
  Country: GB (occurrence: GB)
  Receive Date: 20231227
  Receipt Date: 20231227
  Transmission Date: 20240110
  Serious: Yes (Other)
  Sender: FDA-Public Use
  Company Number: GB-ALNYLAM PHARMACEUTICALS, INC.-ALN-2022-004052

PATIENT

DRUGS (1)
  1. GIVLAARI [Suspect]
     Active Substance: GIVOSIRAN SODIUM
     Indication: Porphyria acute
     Dosage: 188 MILLIGRAM, QM
     Route: 058
     Dates: start: 20220429

REACTIONS (2)
  - Renal impairment [Recovered/Resolved]
  - Hyperhomocysteinaemia [Recovered/Resolved]

NARRATIVE: CASE EVENT DATE: 20220527
